FAERS Safety Report 13068535 (Version 1)
Quarter: 2016Q4

REPORT INFORMATION
  Report Type: Spontaneous
  Country: FI (occurrence: FI)
  Receive Date: 20161228
  Receipt Date: 20161228
  Transmission Date: 20170207
  Serious: Yes (Other)
  Sender: FDA-Public Use
  Company Number: FI-PFIZER INC-2016595928

PATIENT
  Age: 59 Year
  Sex: Male

DRUGS (7)
  1. OXIKLORIN [Concomitant]
     Active Substance: HYDROXYCHLOROQUINE SULFATE
     Dosage: UNK
     Dates: start: 201608
  2. PREDNISOLON [Concomitant]
     Active Substance: PREDNISOLONE
     Dosage: UNK
     Dates: start: 201608
  3. TREXAN [Suspect]
     Active Substance: METHOTREXATE SODIUM
     Dosage: UNK
     Dates: start: 201608
  4. TREXAN [Suspect]
     Active Substance: METHOTREXATE SODIUM
     Dosage: 20 MG, SINGLE
  5. TREXAN [Suspect]
     Active Substance: METHOTREXATE SODIUM
     Dosage: 10 MG, UNK
  6. TREXAN [Suspect]
     Active Substance: METHOTREXATE SODIUM
     Dosage: UNK
     Route: 065
     Dates: start: 201611
  7. ARAVA [Concomitant]
     Active Substance: LEFLUNOMIDE
     Dosage: UNK
     Dates: start: 201608

REACTIONS (6)
  - Rectal haemorrhage [Recovered/Resolved]
  - Skin mass [Recovered/Resolved]
  - Pruritus [Recovered/Resolved]
  - Haematochezia [Recovered/Resolved]
  - Abdominal pain [Recovered/Resolved]
  - Nausea [Recovered/Resolved]
